FAERS Safety Report 9279966 (Version 1)
Quarter: 2013Q2

REPORT INFORMATION
  Report Type: Spontaneous
  Country: US (occurrence: US)
  Receive Date: 20130509
  Receipt Date: 20130509
  Transmission Date: 20140414
  Serious: Yes (Hospitalization)
  Sender: FDA-Public Use
  Company Number: US-AMGEN-USASP2013031978

PATIENT
  Age: 78 Year
  Sex: Female

DRUGS (8)
  1. PROLIA [Suspect]
     Indication: OSTEOPOROSIS POSTMENOPAUSAL
     Dosage: UNK
     Dates: start: 2012
  2. LIPITOR [Concomitant]
  3. METOPROLOL [Concomitant]
  4. CALCIUM WITH VITAMIN D             /00944201/ [Concomitant]
  5. BABY ASPIRIN [Concomitant]
  6. MAGNESIUM [Concomitant]
  7. POTASSIUM [Concomitant]
  8. TRIBENZOR [Concomitant]

REACTIONS (12)
  - Hip fracture [Recovered/Resolved]
  - Femur fracture [Recovered/Resolved]
  - Fall [Recovered/Resolved]
  - Dehydration [Recovering/Resolving]
  - Renal disorder [Recovering/Resolving]
  - Gait disturbance [Unknown]
  - Blood calcium abnormal [Unknown]
  - Blood potassium abnormal [Unknown]
  - Blood magnesium abnormal [Unknown]
  - Dysgeusia [Unknown]
  - Aphagia [Unknown]
  - Musculoskeletal stiffness [Unknown]
